FAERS Safety Report 11379802 (Version 1)
Quarter: 2015Q3

REPORT INFORMATION
  Report Type: Spontaneous
  Country: US (occurrence: None)
  Receive Date: 20150813
  Receipt Date: 20150813
  Transmission Date: 20151125
  Serious: Yes (Life-Threatening)
  Sender: FDA-Public Use
  Company Number: None

PATIENT
  Age: 76 Year
  Sex: Female
  Weight: 68.04 kg

DRUGS (11)
  1. N-COMPLEX [Concomitant]
  2. FISH OIL [Concomitant]
     Active Substance: FISH OIL
  3. FLAXSEEDS OIL [Concomitant]
  4. PIOGLITAZONE. [Suspect]
     Active Substance: PIOGLITAZONE
     Indication: TYPE 2 DIABETES MELLITUS
     Route: 048
     Dates: start: 20150708, end: 20150711
  5. VITAMIN B12 [Concomitant]
     Active Substance: CYANOCOBALAMIN
  6. BAYER ASPIRIN [Concomitant]
     Active Substance: ASPIRIN
  7. MAGNESIUM [Concomitant]
     Active Substance: MAGNESIUM
  8. METFORMIN [Concomitant]
     Active Substance: METFORMIN HYDROCHLORIDE
  9. ATORVASTATIN [Concomitant]
     Active Substance: ATORVASTATIN
  10. CALCIUM [Concomitant]
     Active Substance: CALCIUM
  11. POTASSIUM [Concomitant]
     Active Substance: POTASSIUM

REACTIONS (4)
  - Palpitations [None]
  - Hypertension [None]
  - Dyspnoea [None]
  - Pain [None]

NARRATIVE: CASE EVENT DATE: 20150708
